FAERS Safety Report 17115726 (Version 1)
Quarter: 2019Q4

REPORT INFORMATION
  Report Type: Spontaneous
  Country: RU (occurrence: RU)
  Receive Date: 20191205
  Receipt Date: 20191205
  Transmission Date: 20200122
  Serious: Yes (Other)
  Sender: FDA-Public Use
  Company Number: NVSC2019RU041926

PATIENT
  Age: 44 Year
  Sex: Male

DRUGS (8)
  1. IRINOTECAN [Suspect]
     Active Substance: IRINOTECAN
     Indication: CHEMOTHERAPY
  2. OXALIPLATIN. [Suspect]
     Active Substance: OXALIPLATIN
     Indication: RECTAL ADENOCARCINOMA
     Dosage: 85 MG/M2, CYCLIC (ON THE 1ST DAY)
     Route: 065
  3. OXALIPLATIN. [Suspect]
     Active Substance: OXALIPLATIN
     Indication: CHEMOTHERAPY
  4. CALCIUM FOLINATE [Suspect]
     Active Substance: LEUCOVORIN CALCIUM
     Indication: CHEMOTHERAPY
  5. FLUOROURACIL. [Suspect]
     Active Substance: FLUOROURACIL
     Indication: CHEMOTHERAPY
     Dosage: DOSE REDUCED 25%
     Route: 065
  6. IRINOTECAN [Suspect]
     Active Substance: IRINOTECAN
     Indication: RECTAL ADENOCARCINOMA
     Dosage: 165 MG/M2, CYCLIC (ON THE 1ST DAY)
     Route: 065
  7. FLUOROURACIL. [Suspect]
     Active Substance: FLUOROURACIL
     Indication: RECTAL ADENOCARCINOMA
     Dosage: 3200 MG/M2 (CONTINUOUS INFUSION FOR 46 HOURS)
     Route: 065
  8. CALCIUM FOLINATE [Suspect]
     Active Substance: LEUCOVORIN CALCIUM
     Indication: RECTAL ADENOCARCINOMA
     Dosage: 200 MG/M2
     Route: 065

REACTIONS (10)
  - Disorientation [Recovered/Resolved]
  - Nausea [Unknown]
  - Haematotoxicity [Unknown]
  - Metabolic acidosis [Unknown]
  - Discharge [Unknown]
  - Bone marrow toxicity [Unknown]
  - Hyperlactacidaemia [Unknown]
  - Depressed level of consciousness [Recovered/Resolved]
  - Hepatic encephalopathy [Recovered/Resolved]
  - Vomiting [Unknown]
